FAERS Safety Report 9167328 (Version 1)
Quarter: 2013Q1

REPORT INFORMATION
  Report Type: Spontaneous
  Country: FR (occurrence: None)
  Receive Date: 20130307
  Receipt Date: 20130307
  Transmission Date: 20140127
  Serious: No
  Sender: FDA-Public Use
  Company Number: S13001231

PATIENT
  Age: 82 Year
  Sex: Female

DRUGS (3)
  1. COVERSYL [Suspect]
     Indication: HYPERTENSION
     Route: 048
     Dates: start: 20130216
  2. AMLOR (AMLODIPINE BESILATE) [Concomitant]
  3. PLAVIX (CLOPIDOGREL BISULFATE) [Concomitant]

REACTIONS (8)
  - Vision blurred [None]
  - Dizziness [None]
  - Speech disorder [None]
  - Sensation of pressure [None]
  - Drug intolerance [None]
  - Blood pressure inadequately controlled [None]
  - Hypertension [None]
  - No therapeutic response [None]
